FAERS Safety Report 13898797 (Version 4)
Quarter: 2017Q4

REPORT INFORMATION
  Report Type: Report from Study
  Country: US (occurrence: US)
  Receive Date: 20170823
  Receipt Date: 20171003
  Transmission Date: 20180320
  Serious: Yes (Hospitalization)
  Sender: FDA-Public Use
  Company Number: US-ACTELION-A-US2016-144981

PATIENT
  Age: 73 Year
  Sex: Female
  Weight: 83.9 kg

DRUGS (4)
  1. SILDENAFIL CITRATE. [Concomitant]
     Active Substance: SILDENAFIL CITRATE
  2. OPSUMIT [Suspect]
     Active Substance: MACITENTAN
     Indication: PULMONARY ARTERIAL HYPERTENSION
     Dosage: 10 MG, QD
     Route: 048
     Dates: start: 20140724
  3. WARFARIN [Concomitant]
     Active Substance: WARFARIN
  4. TYVASO [Suspect]
     Active Substance: TREPROSTINIL
     Indication: PRODUCT USED FOR UNKNOWN INDICATION
     Dosage: UNK
     Route: 065
     Dates: start: 20170727

REACTIONS (14)
  - Chest discomfort [Unknown]
  - Headache [Unknown]
  - Pyrexia [Unknown]
  - Diarrhoea [Unknown]
  - Blister [Unknown]
  - Cough [Unknown]
  - Nausea [Unknown]
  - Increased upper airway secretion [Unknown]
  - Sputum discoloured [Unknown]
  - Pneumonia [Unknown]
  - Kidney infection [Unknown]
  - Diverticulitis [Unknown]
  - Throat irritation [Unknown]
  - Accidental exposure to product [Unknown]

NARRATIVE: CASE EVENT DATE: 20170810
